FAERS Safety Report 6269171-9 (Version None)
Quarter: 2009Q3

REPORT INFORMATION
  Report Type: 
  Country: None (occurrence: None)
  Receive Date: 20090715
  Receipt Date: 20090710
  Transmission Date: 20100115
  Serious: Yes (Hospitalization)
  Sender: FDA-Public Use
  Company Number: JP-JNJFOC-20090604449

PATIENT
  Sex: Female
  Weight: 56.5 kg

DRUGS (7)
  1. FENTANYL-100 [Suspect]
     Indication: PAIN
     Route: 062
  2. MAGLAX [Concomitant]
     Indication: CONSTIPATION
     Route: 048
  3. CELECOX [Concomitant]
     Indication: PAIN
     Route: 048
  4. LIORESAL [Concomitant]
     Indication: PAIN
     Route: 048
  5. GASTER D [Concomitant]
     Indication: NAUSEA
     Route: 048
  6. NOVAMIN [Concomitant]
     Indication: NAUSEA
     Route: 048
  7. THYRADIN S [Concomitant]
     Indication: HYPOTHYROIDISM
     Route: 048

REACTIONS (2)
  - DEHYDRATION [None]
  - DIZZINESS [None]
